FAERS Safety Report 13734087 (Version 1)
Quarter: 2017Q3

REPORT INFORMATION
  Report Type: Spontaneous
  Country: US (occurrence: US)
  Receive Date: 20170708
  Receipt Date: 20170708
  Transmission Date: 20171127
  Serious: Yes (Other)
  Sender: FDA-Public Use
  Company Number: US-009507513-1706USA010390

PATIENT
  Age: 3 Month
  Sex: Female

DRUGS (5)
  1. TEMODAR [Suspect]
     Active Substance: TEMOZOLOMIDE
     Indication: ASTROCYTOMA, LOW GRADE
     Dosage: UNK
     Route: 048
  2. VINCRISTINE [Suspect]
     Active Substance: VINCRISTINE
     Indication: ASTROCYTOMA, LOW GRADE
  3. IRINOTECAN HYDROCHLORIDE. [Suspect]
     Active Substance: IRINOTECAN HYDROCHLORIDE
     Indication: ASTROCYTOMA, LOW GRADE
  4. CARBOPLATIN. [Suspect]
     Active Substance: CARBOPLATIN
     Indication: ASTROCYTOMA, LOW GRADE
  5. BEVACIZUMAB. [Suspect]
     Active Substance: BEVACIZUMAB
     Indication: ASTROCYTOMA, LOW GRADE

REACTIONS (2)
  - Neoplasm progression [Unknown]
  - Drug ineffective [Unknown]
